FAERS Safety Report 12469280 (Version 2)
Quarter: 2016Q3

REPORT INFORMATION
  Report Type: Report from Study
  Country: NO (occurrence: NO)
  Receive Date: 20160615
  Receipt Date: 20160713
  Transmission Date: 20161109
  Serious: Yes (Death, Hospitalization)
  Sender: FDA-Public Use
  Company Number: NO-PFIZER INC-2016294628

PATIENT
  Age: 47 Year
  Sex: Male
  Weight: 75 kg

DRUGS (12)
  1. LEVAXIN [Concomitant]
     Active Substance: LEVOTHYROXINE SODIUM
     Indication: HYPOTHYROIDISM
     Dosage: 75 UG, 2X/DAY
     Route: 048
     Dates: start: 20160107
  2. SOMAC [Concomitant]
     Active Substance: PANTOPRAZOLE SODIUM
     Indication: PROPHYLAXIS
     Dosage: 40 MG, 1X/DAY
     Route: 048
     Dates: start: 20150928
  3. COBIMETINIB [Suspect]
     Active Substance: COBIMETINIB
     Dosage: UNK
     Dates: start: 20160421, end: 20160518
  4. ZELBORAF [Concomitant]
     Active Substance: VEMURAFENIB
     Indication: METASTATIC MALIGNANT MELANOMA
     Dosage: 960 MG, 2X/DAY
     Route: 048
     Dates: start: 20151016
  5. IMODIUM [Concomitant]
     Active Substance: LOPERAMIDE HYDROCHLORIDE
  6. MEDROL [Suspect]
     Active Substance: METHYLPREDNISOLONE
     Indication: PRODUCT USED FOR UNKNOWN INDICATION
     Route: 048
     Dates: start: 20150928, end: 20160518
  7. COBIMETINIB [Suspect]
     Active Substance: COBIMETINIB
     Indication: METASTATIC MALIGNANT MELANOMA
     Dosage: 60 MG, 1X/DAY FOR 3 WEEKS
     Route: 048
     Dates: start: 20151223, end: 20160112
  8. KEPPRA [Concomitant]
     Active Substance: LEVETIRACETAM
     Indication: SEIZURE
     Dosage: 500 MG, 2X/DAY
     Route: 048
     Dates: start: 20160407
  9. OXYCONTIN [Concomitant]
     Active Substance: OXYCODONE HYDROCHLORIDE
     Indication: PAIN
     Dosage: 30 MG, 2X/DAY
     Route: 048
     Dates: start: 201604
  10. ZELBORAF [Concomitant]
     Active Substance: VEMURAFENIB
     Indication: BRAF GENE MUTATION
  11. COBIMETINIB [Suspect]
     Active Substance: COBIMETINIB
     Indication: BRAF GENE MUTATION
     Dosage: UNK
     Dates: start: 20160120, end: 20160329
  12. KALEORID [Concomitant]
     Active Substance: POTASSIUM CHLORIDE
     Indication: HYPOKALAEMIA
     Dosage: 750 MG, 2X/DAY
     Route: 048
     Dates: start: 20160204

REACTIONS (3)
  - Lung infection [Fatal]
  - Pneumonitis [Fatal]
  - Bacterial infection [Not Recovered/Not Resolved]

NARRATIVE: CASE EVENT DATE: 20160514
